FAERS Safety Report 5726630-2 (Version None)
Quarter: 2008Q2

REPORT INFORMATION
  Report Type: 
  Country: None (occurrence: None)
  Receive Date: 20080502
  Receipt Date: 20080423
  Transmission Date: 20081010
  Serious: Yes (Other)
  Sender: FDA-Public Use
  Company Number: US-JNJFOC-20080407012

PATIENT
  Age: 50 Year
  Sex: Female

DRUGS (3)
  1. INVEGA [Suspect]
     Indication: DRUG USE FOR UNKNOWN INDICATION
     Route: 048
  2. GABAPENTIN [Concomitant]
     Indication: EPILEPSY
     Route: 048
  3. LAMICTAL [Concomitant]
     Indication: EPILEPSY

REACTIONS (1)
  - CONVULSION [None]
